FAERS Safety Report 21699862 (Version 1)
Quarter: 2022Q4

REPORT INFORMATION
  Report Type: Report from Study
  Country: US (occurrence: US)
  Receive Date: 20221208
  Receipt Date: 20221208
  Transmission Date: 20230113
  Serious: No
  Sender: FDA-Public Use
  Company Number: US-ABBVIE-22K-163-4527215-00

PATIENT
  Age: 25 Year
  Sex: Female
  Weight: 92.986 kg

DRUGS (2)
  1. HUMIRA [Suspect]
     Active Substance: ADALIMUMAB
     Indication: Hidradenitis
     Dosage: CITRATE FREE/BOTH EVENTS RECOVERED ON AN UNKNOWN DATE OF THE YEAR 2022
     Route: 058
     Dates: start: 20220715, end: 20221024
  2. METFORMIN [Concomitant]
     Active Substance: METFORMIN HYDROCHLORIDE
     Indication: Polycystic ovaries
     Dosage: 1500 MG DAILY

REACTIONS (2)
  - Injection site bruising [Recovered/Resolved]
  - Injection site urticaria [Recovered/Resolved]

NARRATIVE: CASE EVENT DATE: 20220815
